FAERS Safety Report 6762629-5 (Version None)
Quarter: 2010Q2

REPORT INFORMATION
  Report Type: 
  Country: None (occurrence: None)
  Receive Date: 20100609
  Receipt Date: 20100531
  Transmission Date: 20101027
  Serious: Yes (Other)
  Sender: FDA-Public Use
  Company Number: GXKR2010ES06113

PATIENT
  Age: 64 Year
  Sex: Male

DRUGS (1)
  1. METFORMIN SANDOZ (NGX) [Suspect]
     Indication: TYPE 2 DIABETES MELLITUS
     Dosage: 850 MG, UNK
     Route: 048
     Dates: start: 20090223, end: 20100107

REACTIONS (1)
  - APHONIA [None]
